FAERS Safety Report 15989778 (Version 1)
Quarter: 2019Q1

REPORT INFORMATION
  Report Type: Spontaneous
  Country: SE (occurrence: SE)
  Receive Date: 20190221
  Receipt Date: 20190221
  Transmission Date: 20190418
  Serious: Yes (Other)
  Sender: FDA-Public Use
  Company Number: SE-TEVA-2019-SE-1014466

PATIENT
  Age: 56 Year
  Sex: Male

DRUGS (8)
  1. MIDAZOLAM [Suspect]
     Active Substance: MIDAZOLAM HYDROCHLORIDE
     Dosage: 25 MILLIGRAM DAILY; CONTINUOUS INFUSION
     Route: 058
  2. METHADONE [Concomitant]
     Active Substance: METHADONE HYDROCHLORIDE
     Dosage: 70 MILLIGRAM DAILY;
     Route: 058
  3. HYDROMORPHONE [Concomitant]
     Active Substance: HYDROMORPHONE
     Dosage: BOLUS DOSES OF 6MG
     Route: 058
  4. METHADONE [Concomitant]
     Active Substance: METHADONE HYDROCHLORIDE
     Indication: PALLIATIVE CARE
     Dosage: 50 MILLIGRAM DAILY;
     Route: 048
  5. METHADONE [Concomitant]
     Active Substance: METHADONE HYDROCHLORIDE
     Dosage: 50 MILLIGRAM DAILY; 10 MG/ML
     Route: 058
  6. HYDROMORPHONE [Concomitant]
     Active Substance: HYDROMORPHONE
     Indication: PALLIATIVE CARE
     Dosage: HYDROMORPHONE10MG/ML WITH A CONTINUOUS SC INFUSION OF 1MG PER HOUR
     Route: 058
  7. MIDAZOLAM [Suspect]
     Active Substance: MIDAZOLAM HYDROCHLORIDE
     Indication: PALLIATIVE CARE
     Dosage: 10 MILLIGRAM DAILY; 5 MG/ML; CONTINUOUS INFUSION
     Route: 058
  8. HYDROMORPHONE [Concomitant]
     Active Substance: HYDROMORPHONE
     Dosage: 4MG PER HOUR
     Route: 058

REACTIONS (3)
  - Anxiety [Recovering/Resolving]
  - Paradoxical pain [Recovering/Resolving]
  - Paradoxical drug reaction [Recovering/Resolving]
